FAERS Safety Report 9818268 (Version 1)
Quarter: 2014Q1

REPORT INFORMATION
  Report Type: Spontaneous
  Country: US (occurrence: US)
  Receive Date: 20140115
  Receipt Date: 20140115
  Transmission Date: 20141002
  Serious: No
  Sender: FDA-Public Use
  Company Number: US-BAYER-2014-006688

PATIENT
  Age: 52 Year
  Sex: Female
  Weight: 63 kg

DRUGS (3)
  1. ALEVE CAPLET [Suspect]
     Indication: LOCAL SWELLING
     Dosage: 1 DF, BID
     Route: 048
     Dates: start: 20140108
  2. VITAMIN C [Concomitant]
  3. VITAMIN D [Concomitant]

REACTIONS (1)
  - Off label use [None]
